FAERS Safety Report 22279946 (Version 1)
Quarter: 2023Q2

REPORT INFORMATION
  Report Type: Spontaneous
  Country: CN (occurrence: CN)
  Receive Date: 20230503
  Receipt Date: 20230503
  Transmission Date: 20230722
  Serious: Yes (Hospitalization)
  Sender: FDA-Public Use
  Company Number: CN-BAYER-2023A056235

PATIENT
  Age: 81 Year
  Sex: Female
  Weight: 48 kg

DRUGS (2)
  1. GLUCOBAY [Interacting]
     Active Substance: ACARBOSE
     Indication: Type 2 diabetes mellitus
     Dosage: 100 MG, TID
     Route: 048
     Dates: start: 20230120, end: 20230421
  2. GLIMEPIRIDE [Interacting]
     Active Substance: GLIMEPIRIDE
     Indication: Type 2 diabetes mellitus
     Dosage: 4 MG, QD
     Route: 048
     Dates: start: 20230120, end: 20230421

REACTIONS (6)
  - Hypoglycaemia [Recovered/Resolved]
  - Depressed level of consciousness [Recovered/Resolved]
  - Dizziness [Recovered/Resolved]
  - Hyperhidrosis [Recovered/Resolved]
  - Slow response to stimuli [Recovered/Resolved]
  - Unresponsive to stimuli [Recovered/Resolved]

NARRATIVE: CASE EVENT DATE: 20230419
